FAERS Safety Report 13676089 (Version 1)
Quarter: 2017Q2

REPORT INFORMATION
  Report Type: Spontaneous
  Country: US (occurrence: US)
  Receive Date: 20170622
  Receipt Date: 20170622
  Transmission Date: 20170830
  Serious: No
  Sender: FDA-Public Use
  Company Number: US-AUROBINDO-AUR-APL-2016-10511

PATIENT
  Sex: Male
  Weight: 79.37 kg

DRUGS (1)
  1. CIPROFLOXACIN TABLET [Suspect]
     Active Substance: CIPROFLOXACIN
     Indication: CYSTITIS
     Dosage: UNK, TWO TIMES A DAY
     Route: 048
     Dates: start: 201511, end: 201512

REACTIONS (1)
  - Tendonitis [Recovering/Resolving]
